FAERS Safety Report 6192374-9 (Version None)
Quarter: 2009Q2

REPORT INFORMATION
  Report Type: 
  Country: None (occurrence: None)
  Receive Date: 20090518
  Receipt Date: 20090514
  Transmission Date: 20091009
  Serious: Yes (Other)
  Sender: FDA-Public Use
  Company Number: US-SP-2009-01613

PATIENT
  Age: 11 Year
  Sex: Male

DRUGS (5)
  1. ADACEL [Suspect]
     Indication: IMMUNISATION
     Route: 030
     Dates: start: 20080601
  2. ADACEL [Suspect]
     Route: 030
     Dates: start: 20080601
  3. ADACEL [Suspect]
     Route: 030
     Dates: start: 20080601
  4. TUBERCULIN NOS [Suspect]
     Indication: TUBERCULIN TEST
     Route: 023
     Dates: start: 20080601
  5. TUBERCULIN NOS [Suspect]
     Route: 023
     Dates: start: 20080601

REACTIONS (8)
  - ASTHMA [None]
  - DYSPNOEA [None]
  - INJECTION SITE PRURITUS [None]
  - INJECTION SITE REACTION [None]
  - RHINORRHOEA [None]
  - SNEEZING [None]
  - URTICARIA [None]
  - WHEEZING [None]
